FAERS Safety Report 23623737 (Version 1)
Quarter: 2024Q1

REPORT INFORMATION
  Report Type: Spontaneous
  Country: US (occurrence: None)
  Receive Date: 20240312
  Receipt Date: 20240312
  Transmission Date: 20240410
  Serious: Yes (Death, Hospitalization)
  Sender: FDA-Public Use
  Company Number: 2024A059667

PATIENT
  Sex: Female

DRUGS (3)
  1. ANDEXANET ALFA [Suspect]
     Active Substance: ANDEXANET ALFA
     Indication: Haemorrhage
     Route: 040
  2. RIVAROXABAN [Concomitant]
     Active Substance: RIVAROXABAN
  3. APIXABAN [Concomitant]
     Active Substance: APIXABAN

REACTIONS (3)
  - Pericardial haemorrhage [Fatal]
  - Intracardiac thrombus [Fatal]
  - Cardiac arrest [Fatal]
